FAERS Safety Report 9847274 (Version 1)
Quarter: 2014Q1

REPORT INFORMATION
  Report Type: Spontaneous
  Country: US (occurrence: US)
  Receive Date: 20140127
  Receipt Date: 20140127
  Transmission Date: 20141002
  Serious: Yes (Hospitalization)
  Sender: FDA-Public Use
  Company Number: US-DYAX CORP.-2013DX000200

PATIENT
  Age: 18 Year
  Sex: Male

DRUGS (8)
  1. KALBITOR [Suspect]
     Indication: HEREDITARY ANGIOEDEMA
     Route: 058
     Dates: start: 201310, end: 201310
  2. KALBITOR [Suspect]
     Route: 058
     Dates: start: 201311, end: 201311
  3. KALBITOR [Suspect]
     Route: 058
     Dates: start: 201311, end: 201311
  4. KALBITOR [Suspect]
     Route: 058
     Dates: start: 201311, end: 201311
  5. KALBITOR [Suspect]
     Route: 058
     Dates: start: 20131115, end: 20131115
  6. KALBITOR [Suspect]
     Route: 058
     Dates: start: 20131115, end: 20131115
  7. KALBITOR [Suspect]
     Route: 058
     Dates: start: 201206
  8. BERINERT [Concomitant]
     Indication: HEREDITARY ANGIOEDEMA
     Route: 065

REACTIONS (3)
  - Hereditary angioedema [Recovering/Resolving]
  - Off label use [Unknown]
  - Extra dose administered [Unknown]
